FAERS Safety Report 24650657 (Version 1)
Quarter: 2024Q4

REPORT INFORMATION
  Report Type: Spontaneous
  Country: US (occurrence: None)
  Receive Date: 20241122
  Receipt Date: 20241122
  Transmission Date: 20250115
  Serious: No
  Sender: UNICHEM
  Company Number: US-ARIS GLOBAL-UCM202312-001545

PATIENT
  Sex: Female

DRUGS (1)
  1. AMLODIPINE [Suspect]
     Active Substance: AMLODIPINE BESYLATE
     Indication: Hypertension
     Route: 048

REACTIONS (7)
  - Mouth ulceration [Unknown]
  - Gastritis [Unknown]
  - Pruritus [Unknown]
  - Swelling [Unknown]
  - Hypersensitivity [Unknown]
  - Wrong technique in product usage process [Unknown]
  - Drug ineffective [Unknown]
